FAERS Safety Report 6730334-7 (Version None)
Quarter: 2010Q2

REPORT INFORMATION
  Report Type: 
  Country: None (occurrence: None)
  Receive Date: 20100518
  Receipt Date: 20100507
  Transmission Date: 20101027
  Serious: Yes (Death, Hospitalization)
  Sender: FDA-Public Use
  Company Number: A0757956A

PATIENT
  Age: 66 Year
  Sex: Male
  Weight: 102.3 kg

DRUGS (7)
  1. AVANDIA [Suspect]
     Dosage: 4MG PER DAY
     Route: 048
     Dates: start: 19990101, end: 20060922
  2. ADALAT [Concomitant]
  3. LESCOL XL [Concomitant]
  4. NORVASC [Concomitant]
  5. METFORMIN HYDROCHLORIDE [Concomitant]
  6. GLYBURIDE [Concomitant]
  7. DIOVAN [Concomitant]

REACTIONS (4)
  - CORONARY ARTERY DISEASE [None]
  - ISCHAEMIC CARDIOMYOPATHY [None]
  - MYOCARDIAL ISCHAEMIA [None]
  - SICK SINUS SYNDROME [None]
